FAERS Safety Report 4311387-2 (Version None)
Quarter: 2004Q1

REPORT INFORMATION
  Report Type: 
  Country: None (occurrence: None)
  Receive Date: 20040302
  Receipt Date: 20040219
  Transmission Date: 20041129
  Serious: Yes (Death)
  Sender: FDA-Public Use
  Company Number: 163-20785-03100306

PATIENT
  Age: 74 Year
  Sex: Female

DRUGS (1)
  1. THALOMID [Suspect]
     Indication: MULTIPLE MYELOMA
     Dosage: 200 MG, DAILY , ORAL
     Route: 048
     Dates: start: 20030912

REACTIONS (3)
  - NERVE INJURY [None]
  - NEUROPATHY [None]
  - RENAL FAILURE [None]
